FAERS Safety Report 13451243 (Version 1)
Quarter: 2017Q2

REPORT INFORMATION
  Report Type: Spontaneous
  Country: CA (occurrence: CA)
  Receive Date: 20170418
  Receipt Date: 20170418
  Transmission Date: 20170830
  Serious: Yes (Hospitalization, Other)
  Sender: FDA-Public Use
  Company Number: CA-CONCORDIA PHARMACEUTICALS INC.-GSH201704-002457

PATIENT
  Age: 83 Year
  Sex: Female

DRUGS (43)
  1. CELEBREX [Suspect]
     Active Substance: CELECOXIB
     Indication: RHEUMATOID ARTHRITIS
     Route: 048
  2. ENBREL [Suspect]
     Active Substance: ETANERCEPT
     Indication: RHEUMATOID ARTHRITIS
     Route: 065
  3. DIPHENOXYLATE [Concomitant]
     Active Substance: DIPHENOXYLATE
  4. ACTONEL [Concomitant]
     Active Substance: RISEDRONATE SODIUM
  5. ESOMEPRAZOLE [Concomitant]
     Active Substance: ESOMEPRAZOLE
  6. TYLENOL [Concomitant]
     Active Substance: ACETAMINOPHEN
  7. PLAQUENIL [Suspect]
     Active Substance: HYDROXYCHLOROQUINE SULFATE
     Indication: RHEUMATOID ARTHRITIS
     Route: 065
  8. ASCORBIC ACID. [Concomitant]
     Active Substance: ASCORBIC ACID
  9. VITAMIN D3 [Concomitant]
     Active Substance: CHOLECALCIFEROL
  10. FENTANYL. [Suspect]
     Active Substance: FENTANYL
     Indication: PRODUCT USED FOR UNKNOWN INDICATION
     Route: 065
  11. CALCIUM [Concomitant]
     Active Substance: CALCIUM
  12. XELJANZ [Concomitant]
     Active Substance: TOFACITINIB CITRATE
     Dates: start: 20160324
  13. D-ALPHA [Concomitant]
  14. SODIUM [Concomitant]
     Active Substance: SODIUM
  15. GABAPENTIN. [Suspect]
     Active Substance: GABAPENTIN
     Indication: PRODUCT USED FOR UNKNOWN INDICATION
     Route: 048
  16. SULFASALAZINE. [Suspect]
     Active Substance: SULFASALAZINE
     Indication: RHEUMATOID ARTHRITIS
     Route: 048
  17. BIOTIN [Concomitant]
     Active Substance: BIOTIN
  18. FERROUS GLUCONATE [Concomitant]
     Active Substance: FERROUS GLUCONATE
  19. PANTOPRAZOLE [Concomitant]
     Active Substance: PANTOPRAZOLE
  20. METHOTREXATE SODIUM. [Suspect]
     Active Substance: METHOTREXATE SODIUM
     Indication: RHEUMATOID ARTHRITIS
     Route: 058
  21. NO DRUG NAME [Concomitant]
  22. ERGOCALCIFEROL. [Concomitant]
     Active Substance: ERGOCALCIFEROL
  23. LOPERAMIDE HYDROCHLORIDE. [Concomitant]
     Active Substance: LOPERAMIDE HYDROCHLORIDE
  24. NASONEX [Concomitant]
     Active Substance: MOMETASONE FUROATE
  25. TRAZODONE HYDROCHLORIDE. [Concomitant]
     Active Substance: TRAZODONE HYDROCHLORIDE
  26. ORENCIA [Suspect]
     Active Substance: ABATACEPT
     Indication: RHEUMATOID ARTHRITIS
     Route: 042
  27. OMEGA 3 [Concomitant]
     Active Substance: OMEGA-3 FATTY ACIDS
  28. NO DRUG NAME [Concomitant]
  29. NICOTINAMIDE [Concomitant]
     Active Substance: NIACINAMIDE
  30. NORTRIPTYLINE HYDROCHLORIDE. [Concomitant]
     Active Substance: NORTRIPTYLINE HYDROCHLORIDE
  31. ARAVA [Suspect]
     Active Substance: LEFLUNOMIDE
     Indication: RHEUMATOID ARTHRITIS
     Route: 048
     Dates: start: 200610
  32. ACTEMRA [Suspect]
     Active Substance: TOCILIZUMAB
     Indication: RHEUMATOID ARTHRITIS
     Route: 042
  33. VITAMIN D [Concomitant]
     Active Substance: CHOLECALCIFEROL
  34. PREDNISONE. [Concomitant]
     Active Substance: PREDNISONE
  35. ACLASTA [Concomitant]
     Active Substance: ZOLEDRONIC ACID
  36. THIAMINE HYDROCHLORIDE. [Concomitant]
     Active Substance: THIAMINE HYDROCHLORIDE
  37. D-ALPHA TOCOPHEROL [Concomitant]
  38. DIPHENOXYLATE HYDROCHLORIDE [Concomitant]
     Active Substance: DIPHENOXYLATE HYDROCHLORIDE
  39. MYOCHRYSINE [Suspect]
     Active Substance: GOLD SODIUM THIOMALATE
     Indication: RHEUMATOID ARTHRITIS
     Route: 030
     Dates: start: 200605, end: 200802
  40. OXYCONTIN [Suspect]
     Active Substance: OXYCODONE HYDROCHLORIDE
     Indication: PRODUCT USED FOR UNKNOWN INDICATION
     Route: 065
  41. PYRIDOXINE HYDROCHLORIDE. [Concomitant]
     Active Substance: PYRIDOXINE HYDROCHLORIDE
  42. RETINOL [Concomitant]
     Active Substance: RETINOL
  43. VITAMINE B12 [Concomitant]

REACTIONS (26)
  - Hospitalisation [Unknown]
  - Diarrhoea [Unknown]
  - Infection [Unknown]
  - Pleural fibrosis [Unknown]
  - Drug hypersensitivity [Unknown]
  - Pleural thickening [Unknown]
  - Blood creatinine increased [Unknown]
  - Osteopenia [Unknown]
  - Blood magnesium increased [Unknown]
  - Blood potassium increased [Unknown]
  - Treatment failure [Unknown]
  - Drug ineffective [Unknown]
  - Presbyacusis [Unknown]
  - Skin lesion [Unknown]
  - Deafness neurosensory [Unknown]
  - Nausea [Unknown]
  - Adverse reaction [Unknown]
  - Epigastric discomfort [Unknown]
  - Gastrointestinal disorder [Unknown]
  - Renal impairment [Unknown]
  - Dry eye [Unknown]
  - Osteoarthritis [Unknown]
  - Sleep disorder [Unknown]
  - Drug intolerance [Unknown]
  - Cyst [Unknown]
  - Fatigue [Unknown]
